FAERS Safety Report 4964190-4 (Version None)
Quarter: 2006Q1

REPORT INFORMATION
  Report Type: 
  Country: None (occurrence: None)
  Receive Date: 20060331
  Receipt Date: 20060320
  Transmission Date: 20060701
  Serious: Yes (Hospitalization)
  Sender: FDA-Public Use
  Company Number: 223238

PATIENT
  Age: 56 Year
  Sex: Female
  Weight: 94.3 kg

DRUGS (8)
  1. AVASTIN [Suspect]
     Indication: LUNG NEOPLASM MALIGNANT
     Dosage: 1415 MG
     Dates: start: 20060316
  2. ALIMTA [Suspect]
     Indication: LUNG NEOPLASM MALIGNANT
     Dosage: 1050 MG, INTRAVENOUS
     Route: 042
     Dates: start: 20060316
  3. CARBOPLATIN [Suspect]
     Indication: LUNG NEOPLASM MALIGNANT
     Dosage: 500 MG, INTRAVEOUS
     Route: 042
     Dates: start: 20060316
  4. FOLIC ACID [Concomitant]
  5. DEADRON (DEXAMETHASONE) [Concomitant]
  6. DARVOCET (ACETAMINOPHEN, PROPOXYPHENE NAPSYLATE) [Concomitant]
  7. PERCOCET [Concomitant]
  8. AMBIEN [Concomitant]

REACTIONS (10)
  - BLOOD SODIUM DECREASED [None]
  - CHEST PAIN [None]
  - CHEST X-RAY ABNORMAL [None]
  - DYSPHAGIA [None]
  - DYSPNOEA [None]
  - GASTROOESOPHAGEAL REFLUX DISEASE [None]
  - HAEMATOCRIT DECREASED [None]
  - HAEMOGLOBIN DECREASED [None]
  - HEADACHE [None]
  - PRODUCTIVE COUGH [None]
